FAERS Safety Report 7155944-7 (Version None)
Quarter: 2010Q4

REPORT INFORMATION
  Report Type: 
  Country: None (occurrence: None)
  Receive Date: 20101214
  Receipt Date: 20101130
  Transmission Date: 20110411
  Serious: Yes (Other)
  Sender: FDA-Public Use
  Company Number: PHHY2010JP78626

PATIENT
  Sex: Male

DRUGS (18)
  1. AFINITOR [Suspect]
     Indication: METASTATIC RENAL CELL CARCINOMA
     Dosage: 10 MG DAILY
     Route: 048
     Dates: start: 20100427, end: 20100521
  2. AFINITOR [Suspect]
     Dosage: 10 MG DAILY
     Route: 048
     Dates: start: 20100515, end: 20100730
  3. AFINITOR [Suspect]
     Dosage: 10 MG DAILY
     Route: 048
     Dates: start: 20100909
  4. INTERFERON ALFA [Concomitant]
     Indication: METASTATIC RENAL CELL CARCINOMA
     Dosage: 3000000 IU
     Dates: start: 20031222
  5. SUNITINIB MALATE [Concomitant]
     Indication: METASTATIC RENAL CELL CARCINOMA
     Dosage: 50 MG
     Route: 048
     Dates: start: 20090521, end: 20090602
  6. SORAFENIB TOSILATE [Concomitant]
     Indication: METASTATIC RENAL CELL CARCINOMA
     Dosage: 400 MG
     Route: 048
     Dates: start: 20090629, end: 20100328
  7. URSO 250 [Concomitant]
     Dosage: 600 MG
     Dates: start: 20090702
  8. NEOPHAGEN [Concomitant]
     Dosage: 600 MG
     Route: 048
     Dates: start: 20090702, end: 20100825
  9. BIOFERMIN [Concomitant]
     Dosage: 3 G
     Route: 048
     Dates: start: 20090729, end: 20100506
  10. THYRADIN [Concomitant]
     Dosage: 50 UG
     Dates: start: 20090729, end: 20100506
  11. NIPOLAZIN [Concomitant]
     Dosage: 12 MG
     Route: 048
     Dates: start: 20090729, end: 20090813
  12. OMEPRAL [Concomitant]
     Dosage: 20 MG
     Route: 048
     Dates: start: 20090729, end: 20100513
  13. LOPEMIN [Concomitant]
     Dosage: 2 MG
     Route: 048
     Dates: start: 20090726
  14. LOPEMIN [Concomitant]
     Dosage: 4 MG
     Route: 048
  15. SALOBEL [Concomitant]
     Dosage: 200 MG
     Route: 048
     Dates: start: 20090729
  16. DIOVAN [Concomitant]
     Dosage: 160 MG
     Route: 048
     Dates: start: 20090806
  17. ATELEC [Concomitant]
     Dosage: 10 MG
     Route: 048
     Dates: start: 20090806
  18. NORVASC [Concomitant]
     Dosage: 10 MG
     Route: 048
     Dates: start: 20090806

REACTIONS (1)
  - RENAL IMPAIRMENT [None]
